FAERS Safety Report 26046389 (Version 2)
Quarter: 2025Q4

REPORT INFORMATION
  Report Type: Spontaneous
  Country: JP (occurrence: JP)
  Receive Date: 20251114
  Receipt Date: 20251205
  Transmission Date: 20260117
  Serious: Yes (Other)
  Sender: AMGEN
  Company Number: JP-AMGEN-JPNSP2025224619

PATIENT

DRUGS (2)
  1. BEVACIZUMAB [Suspect]
     Active Substance: BEVACIZUMAB
     Indication: Homologous recombination deficiency positive advanced ovarian cancer
     Dosage: UNK (MAINTENANCE THERAPY) (DRIP INFUSION)
     Route: 040
  2. OLAPARIB [Suspect]
     Active Substance: OLAPARIB
     Indication: Homologous recombination deficiency positive advanced ovarian cancer
     Dosage: UNK, QD (MILLIGRAM) (MAINTENANCE THERAPY)
     Route: 065

REACTIONS (4)
  - Adverse event [Unknown]
  - Anaemia [Unknown]
  - Gastrointestinal disorder [Unknown]
  - Neutropenia [Unknown]
